FAERS Safety Report 20578689 (Version 1)
Quarter: 2022Q1

REPORT INFORMATION
  Report Type: Spontaneous
  Country: LB (occurrence: None)
  Receive Date: 20220310
  Receipt Date: 20220310
  Transmission Date: 20220423
  Serious: Yes (Other)
  Sender: FDA-Public Use
  Company Number: LB-ROCHE-3043192

PATIENT
  Age: 63 Year
  Sex: Male
  Weight: 60 kg

DRUGS (11)
  1. RITUXIMAB [Suspect]
     Active Substance: RITUXIMAB
     Indication: Diffuse large B-cell lymphoma
     Dosage: 1ST LINE TREATMENT, 6 CYCLES
     Route: 065
     Dates: start: 20210312, end: 20210623
  2. RITUXIMAB [Suspect]
     Active Substance: RITUXIMAB
     Dosage: 2ND LINE TREATMENT, 4 CYCLES
     Route: 065
     Dates: start: 20210910, end: 20211114
  3. RITUXIMAB [Suspect]
     Active Substance: RITUXIMAB
     Dosage: 3RD LINE TREATMENT, (1 CYCLE ONLY)
     Route: 065
     Dates: start: 20211216
  4. CYCLOPHOSPHAMIDE [Suspect]
     Active Substance: CYCLOPHOSPHAMIDE
     Indication: Diffuse large B-cell lymphoma
     Dosage: 1ST LINE TREATMENT, 6 CYCLES
     Route: 065
     Dates: start: 20210312, end: 20210623
  5. DOXORUBICIN [Suspect]
     Active Substance: DOXORUBICIN
     Indication: Diffuse large B-cell lymphoma
     Dosage: 1ST LINE TREATMENT, 6 CYCLES
     Route: 065
     Dates: start: 20210312, end: 20210623
  6. VINCRISTINE [Suspect]
     Active Substance: VINCRISTINE
     Indication: Diffuse large B-cell lymphoma
     Dosage: 1ST LINE TREATMENT, 6 CYCLES
     Route: 065
     Dates: start: 20210312, end: 20210623
  7. CARBOPLATIN [Suspect]
     Active Substance: CARBOPLATIN
     Indication: Diffuse large B-cell lymphoma
     Dosage: 2ND LINE TREATMENT, 4 CYCLES
     Route: 065
     Dates: start: 20210910, end: 20211114
  8. ETOPOSIDE [Suspect]
     Active Substance: ETOPOSIDE
     Indication: Diffuse large B-cell lymphoma
     Dosage: 2ND LINE TREATMENT, 4 CYCLES
     Route: 065
     Dates: start: 20210910, end: 20211114
  9. IFOSFAMIDE [Suspect]
     Active Substance: IFOSFAMIDE
     Indication: Diffuse large B-cell lymphoma
     Dosage: 2ND LINE TREATMENT, 4 CYCLES
     Route: 065
     Dates: start: 20210910, end: 20211114
  10. CYTARABINE [Suspect]
     Active Substance: CYTARABINE
     Indication: Diffuse large B-cell lymphoma
     Dosage: 3RD LINE TREATMENT, (1 CYCLE ONLY)
     Route: 065
     Dates: start: 20211216
  11. OXALIPLATIN [Suspect]
     Active Substance: OXALIPLATIN
     Indication: Diffuse large B-cell lymphoma
     Dosage: 3RD LINE TREATMENT, (1 CYCLE ONLY)
     Route: 065
     Dates: start: 20211216

REACTIONS (2)
  - Renal failure [Unknown]
  - COVID-19 [Unknown]
